FAERS Safety Report 7001482-1 (Version None)
Quarter: 2010Q3

REPORT INFORMATION
  Report Type: 
  Country: None (occurrence: None)
  Receive Date: 20100920
  Receipt Date: 20100909
  Transmission Date: 20110219
  Serious: Yes (Hospitalization, Other)
  Sender: FDA-Public Use
  Company Number: US-ROCHE-720858

PATIENT
  Sex: Male
  Weight: 159 kg

DRUGS (4)
  1. BEVACIZUMAB [Suspect]
     Indication: METASTATIC CARCINOID TUMOUR
     Route: 042
     Dates: start: 20090430, end: 20100818
  2. LEUCOVORIN CALCIUM [Suspect]
     Indication: METASTATIC CARCINOID TUMOUR
     Route: 042
     Dates: start: 20090430, end: 20100721
  3. FLUOROURACIL [Suspect]
     Indication: METASTATIC CARCINOID TUMOUR
     Route: 042
     Dates: start: 20090430, end: 20100721
  4. OXALIPLATIN [Suspect]
     Indication: METASTATIC CARCINOID TUMOUR
     Route: 042
     Dates: start: 20090430, end: 20090930

REACTIONS (6)
  - ABDOMINAL PAIN UPPER [None]
  - BACK PAIN [None]
  - GAIT DISTURBANCE [None]
  - MUSCLE SPASMS [None]
  - NEUROPATHY PERIPHERAL [None]
  - PUBIS FRACTURE [None]
